FAERS Safety Report 9602727 (Version 1)
Quarter: 2013Q4

REPORT INFORMATION
  Report Type: Spontaneous
  Country: US (occurrence: None)
  Receive Date: 20131003
  Receipt Date: 20131003
  Transmission Date: 20140711
  Serious: Yes (Other)
  Sender: FDA-Public Use
  Company Number: ADR-2013-01774

PATIENT
  Sex: Female

DRUGS (2)
  1. BACLOFEN INTRATHECAL [Suspect]
     Indication: STIFF PERSON SYNDROME
  2. DIAZEPAM [Suspect]

REACTIONS (8)
  - Hypoaesthesia [None]
  - Myalgia [None]
  - Muscle spasms [None]
  - Gait disturbance [None]
  - Balance disorder [None]
  - Myoclonus [None]
  - Fall [None]
  - Irritability [None]
